FAERS Safety Report 4625491-2 (Version None)
Quarter: 2005Q2

REPORT INFORMATION
  Report Type: 
  Country: None (occurrence: None)
  Receive Date: 20050401
  Receipt Date: 20050323
  Transmission Date: 20051028
  Serious: Yes (Hospitalization)
  Sender: FDA-Public Use
  Company Number: PHBS2005JP04308

PATIENT
  Age: 53 Year
  Sex: Male

DRUGS (4)
  1. SIMULECT [Suspect]
     Indication: RENAL TRANSPLANT
     Route: 042
     Dates: start: 20020101, end: 20020101
  2. TACROLIMUS [Concomitant]
     Indication: RENAL TRANSPLANT
  3. CELLCEPT [Concomitant]
     Indication: RENAL TRANSPLANT
  4. STEROIDS NOS [Concomitant]
     Indication: RENAL TRANSPLANT

REACTIONS (2)
  - CALCULUS URETERIC [None]
  - LITHOTRIPSY [None]
